FAERS Safety Report 19101012 (Version 1)
Quarter: 2021Q2

REPORT INFORMATION
  Report Type: Spontaneous
  Country: US (occurrence: US)
  Receive Date: 20210406
  Receipt Date: 20210406
  Transmission Date: 20210717
  Serious: No
  Sender: FDA-Public Use
  Company Number: None

PATIENT
  Sex: Female
  Weight: 51.71 kg

DRUGS (4)
  1. ZYRTEC [Concomitant]
     Active Substance: CETIRIZINE HYDROCHLORIDE
  2. QVAR [Concomitant]
     Active Substance: BECLOMETHASONE DIPROPIONATE
  3. ALBUTEROL. [Concomitant]
     Active Substance: ALBUTEROL
  4. MIRENA [Suspect]
     Active Substance: LEVONORGESTREL
     Dates: start: 20140301, end: 20200506

REACTIONS (1)
  - Vaginal discharge [None]

NARRATIVE: CASE EVENT DATE: 20191001
